FAERS Safety Report 11552377 (Version 1)
Quarter: 2015Q3

REPORT INFORMATION
  Report Type: Spontaneous
  Country: US (occurrence: US)
  Receive Date: 20150925
  Receipt Date: 20150925
  Transmission Date: 20151125
  Serious: No
  Sender: FDA-Public Use
  Company Number: US-PFIZER INC-2015318149

PATIENT
  Age: 18 Year
  Sex: Female

DRUGS (3)
  1. PROZAC [Concomitant]
     Active Substance: FLUOXETINE HYDROCHLORIDE
     Dosage: 20 MG, 1X/DAY
  2. ZYPREXA [Concomitant]
     Active Substance: OLANZAPINE
     Dosage: 10 MG, 1X/DAY (EVERY NIGHT AT BED TIME)
  3. CHANTIX [Suspect]
     Active Substance: VARENICLINE TARTRATE
     Dosage: 1 MG, 2X/DAY
     Route: 048

REACTIONS (1)
  - Limb injury [Unknown]
